FAERS Safety Report 4918598-3 (Version None)
Quarter: 2006Q1

REPORT INFORMATION
  Report Type: 
  Country: None (occurrence: None)
  Receive Date: 20060216
  Receipt Date: 20060130
  Transmission Date: 20060701
  Serious: Yes (Hospitalization, Other)
  Sender: FDA-Public Use
  Company Number: US200601005536

PATIENT
  Sex: Female

DRUGS (7)
  1. FORTEO [Suspect]
     Indication: OSTEOPOROSIS
     Dates: start: 20040501, end: 20060101
  2. FORTEO [Suspect]
     Indication: OSTEOPOROSIS
     Dates: start: 20060101
  3. FORTEO [Concomitant]
  4. LEVOXYL [Concomitant]
  5. SPIRIVA [Concomitant]
  6. PULMICORT [Concomitant]
  7. PREDNISONE TAB [Concomitant]

REACTIONS (8)
  - BRONCHITIS [None]
  - CONDITION AGGRAVATED [None]
  - HEADACHE [None]
  - HOT FLUSH [None]
  - MALAISE [None]
  - METASTASES TO LIVER [None]
  - PNEUMONIA [None]
  - WEIGHT DECREASED [None]
